FAERS Safety Report 10596890 (Version 4)
Quarter: 2015Q3

REPORT INFORMATION
  Report Type: Spontaneous
  Country: US (occurrence: US)
  Receive Date: 20141120
  Receipt Date: 20150827
  Transmission Date: 20151125
  Serious: Yes (Other)
  Sender: FDA-Public Use
  Company Number: US-GLAXOSMITHKLINE-A1090318A

PATIENT
  Age: 63 Year
  Sex: Female

DRUGS (3)
  1. PROMACTA [Suspect]
     Active Substance: ELTROMBOPAG OLAMINE
     Dosage: 25 MG, QOD
     Route: 048
  2. PROMACTA [Suspect]
     Active Substance: ELTROMBOPAG OLAMINE
     Indication: THROMBOCYTOPENIA
     Dosage: 25 MG, Z
     Route: 048
     Dates: start: 20140213
  3. PROMACTA [Suspect]
     Active Substance: ELTROMBOPAG OLAMINE
     Dosage: 25 UNK, 1 TAB 6 DAYS/WK
     Dates: start: 20140228

REACTIONS (11)
  - Cardioversion [Unknown]
  - Muscle spasms [Unknown]
  - Confusional state [Unknown]
  - Pain in extremity [Unknown]
  - Atrial fibrillation [Unknown]
  - Fluid retention [Unknown]
  - Echocardiogram [Unknown]
  - Heart rate increased [Unknown]
  - Dizziness [Unknown]
  - Amnesia [Not Recovered/Not Resolved]
  - Cardiac disorder [Unknown]

NARRATIVE: CASE EVENT DATE: 20140822
